FAERS Safety Report 9049275 (Version 1)
Quarter: 2012Q4

REPORT INFORMATION
  Report Type: Spontaneous
  Country: US (occurrence: None)
  Receive Date: 20120905
  Receipt Date: 20120905
  Transmission Date: 20130627
  Serious: No
  Sender: FDA-Public Use
  Company Number: 2012-3760

PATIENT
  Age: 55 Year
  Sex: Female
  Weight: 81.8 kg

DRUGS (4)
  1. SOMATULINE DEPOT [Suspect]
     Indication: ACROMEGALY
     Dosage: 90 mg (90 mg, 1 in 28 D), Subcutaneous
     Route: 058
     Dates: start: 20120626
  2. ATENOLOL (ATENOLOL) [Concomitant]
  3. BUSPIRONE (BUSPIRONE) [Concomitant]
  4. CLONAZEPAM (CLONAZEPAM) [Concomitant]

REACTIONS (5)
  - Arthralgia [None]
  - Fatigue [None]
  - Abdominal discomfort [None]
  - Constipation [None]
  - Diarrhoea [None]
